FAERS Safety Report 9971310 (Version 1)
Quarter: 2014Q1

REPORT INFORMATION
  Report Type: Spontaneous
  Country: US (occurrence: None)
  Receive Date: 20140305
  Receipt Date: 20140305
  Transmission Date: 20141002
  Serious: Yes (Disabling)
  Sender: FDA-Public Use
  Company Number: None

PATIENT
  Age: 35 Year
  Sex: 0
  Weight: 81.65 kg

DRUGS (1)
  1. LEVOFLOXACIN [Suspect]
     Indication: SINUSITIS
     Dosage: TAKEN BY MOUTH
     Dates: start: 20140122, end: 20140122

REACTIONS (6)
  - Insomnia [None]
  - Heart rate increased [None]
  - Pain in extremity [None]
  - Arthralgia [None]
  - Tendonitis [None]
  - Exercise tolerance decreased [None]
